FAERS Safety Report 9820730 (Version 1)
Quarter: 2013Q4

REPORT INFORMATION
  Report Type: Spontaneous
  Country: US (occurrence: None)
  Receive Date: 20131028
  Receipt Date: 20131028
  Transmission Date: 20140711
  Serious: No
  Sender: FDA-Public Use
  Company Number: 2013US001379

PATIENT
  Age: 41 Year
  Sex: Female
  Weight: 49 kg

DRUGS (20)
  1. ICLUSIG (PONATINIB) TABLET, 45MG [Suspect]
     Indication: CHRONIC MYELOID LEUKAEMIA
     Route: 048
     Dates: start: 20130313, end: 20130329
  2. WELLBUTRIN (BUPROPION HYDROCHLORIDE) [Concomitant]
  3. CELEXA (CITALOPRAM HYDROBROMIDE) [Concomitant]
  4. AMBIEN (ZOLPIDEM TARTRATE) [Concomitant]
  5. ATIVAN (LORAZEPAM) [Concomitant]
  6. ZOFRAN (ONDANSETRON) [Concomitant]
  7. LORTAB (HYDROCODONE BITARTRATE, PARACETAMOL) [Concomitant]
  8. PROVIGIL (MODAFINIL) [Concomitant]
  9. CELEBREX (CELECOXIB) [Concomitant]
  10. AMERGE (NARATRIPTAN HYDROCHLORIDE) [Concomitant]
  11. SENOKOT-S (DOCUSATE SODIUM, SENNA ALEXANDRINA) [Concomitant]
  12. PHENERGAN (PROMETHAZINE) [Concomitant]
  13. LEVETIRACETAM (LEVETIRACETAM) [Concomitant]
  14. BACLOFEN (BACLOFEN) [Concomitant]
  15. CAPHOSOL (CALCIUM CHLORIDE, SODIUM CHLORIDE, SODIUM PHOSPHATE DIBASIC, SODIUM PHOSPHATE MONOBASIC) [Concomitant]
  16. ERGOCALCIFEROL (ERGOCALCIFEROL) [Concomitant]
  17. SUCRALFATE (SUCRALFATE) [Concomitant]
  18. BENADRYL (DIPHENHYDRAMINE HYDROCHLORIDE) [Concomitant]
  19. NEURONTIN (GABAPENTIN) [Concomitant]
  20. SKELAXIN (METAXALONE) [Concomitant]

REACTIONS (13)
  - Musculoskeletal chest pain [None]
  - Musculoskeletal pain [None]
  - Temporomandibular joint syndrome [None]
  - Neck pain [None]
  - Pruritus [None]
  - Rash maculo-papular [None]
  - Bone pain [None]
  - Platelet count decreased [None]
  - Back pain [None]
  - Pain [None]
  - Myalgia [None]
  - Headache [None]
  - Dry skin [None]
